FAERS Safety Report 6121976-0 (Version None)
Quarter: 2009Q1

REPORT INFORMATION
  Report Type: 
  Country: None (occurrence: None)
  Receive Date: 20090316
  Receipt Date: 20090226
  Transmission Date: 20090719
  Serious: Yes (Hospitalization)
  Sender: FDA-Public Use
  Company Number: JPI-P-006339

PATIENT
  Age: 46 Year
  Sex: Male

DRUGS (2)
  1. XYREM [Suspect]
     Indication: LYME DISEASE
     Dosage: 6 GM (3 GM,2 IN 1 D),ORAL ; 9 GM (4.5 GM,2 IN 1 D),ORAL
     Route: 048
     Dates: start: 20090122, end: 20090220
  2. XYREM [Suspect]
     Indication: LYME DISEASE
     Dosage: 6 GM (3 GM,2 IN 1 D),ORAL ; 9 GM (4.5 GM,2 IN 1 D),ORAL
     Route: 048
     Dates: start: 20090201

REACTIONS (7)
  - AMNESIA [None]
  - BLOOD TESTOSTERONE DECREASED [None]
  - FEAR [None]
  - INCOHERENT [None]
  - LOSS OF CONSCIOUSNESS [None]
  - RESTLESSNESS [None]
  - VOMITING [None]
